FAERS Safety Report 6252391-7 (Version None)
Quarter: 2009Q2

REPORT INFORMATION
  Report Type: 
  Country: None (occurrence: None)
  Receive Date: 20090629
  Receipt Date: 20090629
  Transmission Date: 20091009
  Serious: No
  Sender: FDA-Public Use
  Company Number: None

PATIENT
  Age: 45 Year
  Sex: Male
  Weight: 71.6683 kg

DRUGS (1)
  1. ZICAM NASAL GEL .50FL. OZ. BY MATRIXX [Suspect]
     Indication: NASOPHARYNGITIS
     Dosage: 2 SQUIRTS/NOSTRIL EVERY 4-6HRS NASAL
     Route: 045
     Dates: start: 20050128

REACTIONS (2)
  - AGEUSIA [None]
  - ANOSMIA [None]
